FAERS Safety Report 18840903 (Version 2)
Quarter: 2021Q1

REPORT INFORMATION
  Report Type: Spontaneous
  Country: JP (occurrence: JP)
  Receive Date: 20210204
  Receipt Date: 20210210
  Transmission Date: 20210419
  Serious: Yes (Hospitalization, Other)
  Sender: FDA-Public Use
  Company Number: JP-JNJFOC-20210204780

PATIENT
  Age: 5 Decade
  Sex: Male

DRUGS (5)
  1. LONASEN [Suspect]
     Active Substance: BLONANSERIN
     Indication: SCHIZOPHRENIA
     Dosage: DOSE UNKNOWN
     Route: 048
  2. RISPERDAL [Suspect]
     Active Substance: RISPERIDONE
     Indication: SCHIZOPHRENIA
     Dosage: DOSE UNKNOWN
     Route: 048
  3. LONASEN [Suspect]
     Active Substance: BLONANSERIN
     Dosage: DOSE UNKNOWN
     Route: 062
  4. REXULTI [Concomitant]
     Active Substance: BREXPIPRAZOLE
     Dosage: DOSE UNKNOWN
     Route: 048
  5. OLANZAPINE. [Concomitant]
     Active Substance: OLANZAPINE
     Dosage: DOSE UNKNOWN
     Route: 065

REACTIONS (5)
  - Dyslalia [Unknown]
  - Hallucination, auditory [Unknown]
  - Tardive dyskinesia [Unknown]
  - Pneumonia aspiration [Unknown]
  - Salivary hypersecretion [Unknown]
